FAERS Safety Report 5278430-8 (Version None)
Quarter: 2007Q1

REPORT INFORMATION
  Report Type: 
  Country: None (occurrence: None)
  Receive Date: 20061213
  Receipt Date: 20050822
  Transmission Date: 20070707
  Serious: No
  Sender: FDA-Public Use
  Company Number: 2005UW09992

PATIENT
  Sex: Female

DRUGS (7)
  1. SEROQUEL [Suspect]
     Dosage: 600 MG DAILY PO
     Route: 048
  2. SEROQUEL [Suspect]
     Dosage: 700 MG DAILY PO
     Route: 048
  3. SEROQUEL [Suspect]
     Dosage: 600 MG DAILY PO
     Route: 048
  4. SEROQUEL [Suspect]
     Dosage: 600 MG DAILY PO
     Route: 048
  5. PAXIL [Concomitant]
  6. XANAX [Concomitant]
  7. ATIVAN [Concomitant]

REACTIONS (13)
  - COMMUNICATION DISORDER [None]
  - CONVULSION [None]
  - DRUG INEFFECTIVE [None]
  - DYSPHAGIA [None]
  - DYSTONIA [None]
  - GASTROINTESTINAL DISORDER [None]
  - GASTROOESOPHAGEAL REFLUX DISEASE [None]
  - NERVOUSNESS [None]
  - PAIN IN EXTREMITY [None]
  - PANIC ATTACK [None]
  - PHARYNGOLARYNGEAL PAIN [None]
  - PSYCHOTIC DISORDER [None]
  - TARDIVE DYSKINESIA [None]
